FAERS Safety Report 4554645-9 (Version None)
Quarter: 2005Q1

REPORT INFORMATION
  Report Type: 
  Country: None (occurrence: None)
  Receive Date: 20041228
  Receipt Date: 20040604
  Transmission Date: 20050727
  Serious: No
  Sender: FDA-Public Use
  Company Number: ALMO2004025

PATIENT
  Age: 56 Year
  Sex: Male

DRUGS (1)
  1. AMIGNUL 12, 5MG 4 COMPRIMIDOS [Suspect]
     Dosage: 12.5 MG DAILY PO
     Route: 048

REACTIONS (4)
  - BONE PAIN [None]
  - ENZYME ABNORMALITY [None]
  - OEDEMA PERIPHERAL [None]
  - RHABDOMYOLYSIS [None]
